FAERS Safety Report 25702962 (Version 1)
Quarter: 2025Q3

REPORT INFORMATION
  Report Type: Report from Study
  Country: US (occurrence: US)
  Receive Date: 20250819
  Receipt Date: 20250819
  Transmission Date: 20251021
  Serious: Yes (Other)
  Sender: ABBVIE
  Company Number: US-ABBVIE-5811707

PATIENT
  Age: 64 Year
  Sex: Female

DRUGS (1)
  1. RINVOQ [Suspect]
     Active Substance: UPADACITINIB
     Indication: Rheumatoid arthritis
     Route: 048
     Dates: start: 20210317

REACTIONS (9)
  - Ligament sprain [Not Recovered/Not Resolved]
  - Lower limb fracture [Recovering/Resolving]
  - Joint stiffness [Unknown]
  - Foot fracture [Recovering/Resolving]
  - Muscular weakness [Unknown]
  - Limb injury [Unknown]
  - Fatigue [Not Recovered/Not Resolved]
  - Fall [Recovered/Resolved]
  - Fall [Recovering/Resolving]

NARRATIVE: CASE EVENT DATE: 20240101
